FAERS Safety Report 14449693 (Version 5)
Quarter: 2019Q3

REPORT INFORMATION
  Report Type: Spontaneous
  Country: DE (occurrence: DE)
  Receive Date: 20180128
  Receipt Date: 20190917
  Transmission Date: 20191004
  Serious: Yes (Hospitalization, Other)
  Sender: FDA-Public Use
  Company Number: PHHY2017DE171635

PATIENT
  Age: 41 Year
  Sex: Female

DRUGS (5)
  1. GILENYA [Suspect]
     Active Substance: FINGOLIMOD HYDROCHLORIDE
     Indication: RELAPSING-REMITTING MULTIPLE SCLEROSIS
     Dosage: 0.5 MG, UNK
     Route: 065
     Dates: start: 201402, end: 20171116
  2. GABAPENTIN. [Concomitant]
     Active Substance: GABAPENTIN
     Indication: NEURALGIA
     Dosage: 900 MG, QD
     Route: 048
     Dates: start: 2015
  3. FAMPYRA [Concomitant]
     Active Substance: DALFAMPRIDINE
     Indication: GAIT DISTURBANCE
     Dosage: 20 MG, QD
     Route: 048
     Dates: start: 2014
  4. OPIPRAMOL [Concomitant]
     Active Substance: OPIPRAMOL
     Indication: ANXIETY
     Dosage: 100 MG, QD
     Route: 048
     Dates: start: 2015
  5. OPIPRAMOL [Concomitant]
     Active Substance: OPIPRAMOL
     Indication: PANIC ATTACK

REACTIONS (11)
  - Immune reconstitution inflammatory syndrome [Recovering/Resolving]
  - Asthenia [Unknown]
  - Lymphopenia [Recovered/Resolved]
  - Irritability [Not Recovered/Not Resolved]
  - Pyrexia [Unknown]
  - Progressive multifocal leukoencephalopathy [Recovered/Resolved]
  - Gait disturbance [Not Recovered/Not Resolved]
  - Personality change [Unknown]
  - Cognitive disorder [Unknown]
  - Clumsiness [Unknown]
  - Nervous system disorder [Unknown]

NARRATIVE: CASE EVENT DATE: 20171114
